FAERS Safety Report 10041291 (Version 2)
Quarter: 2014Q2

REPORT INFORMATION
  Report Type: Report from Study
  Country: FR (occurrence: FR)
  Receive Date: 20140327
  Receipt Date: 20140428
  Transmission Date: 20141212
  Serious: Yes (Hospitalization)
  Sender: FDA-Public Use
  Company Number: FR-MALLINCKRODT-T201401593

PATIENT
  Age: 80 Year
  Sex: Male

DRUGS (1)
  1. OPTIJECT 350 [Suspect]
     Indication: COMPUTERISED TOMOGRAM
     Dosage: 90 ML, SINGLE, 2.5 ML/S
     Route: 042
     Dates: start: 20130312, end: 20130312

REACTIONS (2)
  - Dyspnoea [Unknown]
  - Hyperhidrosis [Unknown]
